FAERS Safety Report 6493207-3 (Version None)
Quarter: 2009Q4

REPORT INFORMATION
  Report Type: 
  Country: None (occurrence: None)
  Receive Date: 20091211
  Receipt Date: 20091211
  Transmission Date: 20100525
  Serious: No
  Sender: FDA-Public Use
  Company Number: None

PATIENT
  Age: 79 Year
  Sex: Male
  Weight: 68.0396 kg

DRUGS (2)
  1. PATANASE NASAL SPRAY 665MCG ALCON [Suspect]
     Indication: COUGH
     Dosage: 2 APRAYS PER NOSTRIL BID NASAL
     Route: 045
     Dates: start: 20091005, end: 20091027
  2. PATANASE NASAL SPRAY 665MCG ALCON [Suspect]
     Indication: POSTNASAL DRIP
     Dosage: 2 APRAYS PER NOSTRIL BID NASAL
     Route: 045
     Dates: start: 20091005, end: 20091027

REACTIONS (2)
  - AGEUSIA [None]
  - FOOD AVERSION [None]
